FAERS Safety Report 20519763 (Version 1)
Quarter: 2022Q1

REPORT INFORMATION
  Report Type: Spontaneous
  Country: US (occurrence: None)
  Receive Date: 20220225
  Receipt Date: 20220225
  Transmission Date: 20220423
  Serious: Yes (Death)
  Sender: FDA-Public Use
  Company Number: None

PATIENT
  Age: 36 Year
  Sex: Male
  Weight: 133.9 kg

DRUGS (1)
  1. OMNIPAQUE [Suspect]
     Active Substance: IOHEXOL
     Indication: Diagnostic procedure
     Dosage: OTHER FREQUENCY : ONCE;?
     Route: 042
     Dates: start: 20210629, end: 20210629

REACTIONS (6)
  - Burning sensation [None]
  - Dyspnoea [None]
  - Foaming at mouth [None]
  - Resuscitation [None]
  - Secretion discharge [None]
  - Anaphylactic reaction [None]

NARRATIVE: CASE EVENT DATE: 20210629
